FAERS Safety Report 8922277 (Version 2)
Quarter: 2013Q2

REPORT INFORMATION
  Report Type: Spontaneous
  Country: US (occurrence: US)
  Receive Date: 20121126
  Receipt Date: 20130610
  Transmission Date: 20140414
  Serious: Yes (Hospitalization)
  Sender: FDA-Public Use
  Company Number: US-ACTELION-A-US2012-61892

PATIENT
  Age: 21 Year
  Sex: Female

DRUGS (6)
  1. TRACLEER [Suspect]
     Indication: PULMONARY ARTERIAL HYPERTENSION
     Dosage: 125 MG, BID
     Route: 048
     Dates: start: 20120118
  2. TRACLEER [Suspect]
     Dosage: 62.5 MG, BID
     Route: 048
     Dates: start: 20110106, end: 20120109
  3. TYVASO [Suspect]
  4. ADCIRCA [Concomitant]
     Dosage: UNK
  5. ASPIRIN CHILDREN [Concomitant]
     Dosage: 62.5 MG, BID
     Route: 048
     Dates: start: 20110107, end: 20120117
  6. ASPIRIN CHILDREN [Concomitant]
     Dosage: 125 MG, BID
     Dates: start: 20120118

REACTIONS (5)
  - Cerebral haemorrhage [Unknown]
  - Haemorrhage [Recovering/Resolving]
  - International normalised ratio increased [Recovering/Resolving]
  - Prothrombin level abnormal [Unknown]
  - Splenomegaly [Unknown]
